APPROVED DRUG PRODUCT: GLYCOPYRROLATE
Active Ingredient: GLYCOPYRROLATE
Strength: 2MG
Dosage Form/Route: TABLET;ORAL
Application: A090195 | Product #002 | TE Code: AA
Applicant: VELZEN PHARMA PVT LTD
Approved: Sep 21, 2012 | RLD: No | RS: No | Type: RX